FAERS Safety Report 8234055-3 (Version None)
Quarter: 2012Q1

REPORT INFORMATION
  Report Type: 
  Country: None (occurrence: None)
  Receive Date: 20120326
  Receipt Date: 20120326
  Transmission Date: 20120608
  Serious: Yes (Hospitalization)
  Sender: FDA-Public Use
  Company Number: None

PATIENT
  Age: 39 Year
  Sex: Female
  Weight: 1050.5 kg

DRUGS (4)
  1. TRI-SPRINTEC [Suspect]
  2. TRI-SPRINTEC [Suspect]
     Indication: UTERINE CYST
     Dosage: ONE TABLET
     Route: 048
     Dates: start: 20111023, end: 20120103
  3. TRI-SPRINTEC [Suspect]
     Indication: MENORRHAGIA
     Dosage: ONE TABLET
     Route: 048
     Dates: start: 20111023, end: 20120103
  4. TRI-SPRINTEC [Suspect]
     Indication: UTERINE LEIOMYOMA
     Dosage: ONE TABLET
     Route: 048
     Dates: start: 20111023, end: 20120103

REACTIONS (2)
  - DYSPNOEA [None]
  - DEEP VEIN THROMBOSIS [None]
